FAERS Safety Report 6420815-8 (Version None)
Quarter: 2009Q4

REPORT INFORMATION
  Report Type: 
  Country: None (occurrence: None)
  Receive Date: 20091030
  Receipt Date: 20091025
  Transmission Date: 20100525
  Serious: Yes (Other)
  Sender: FDA-Public Use
  Company Number: US-SANOFI-SYNTHELABO-A03200904999

PATIENT
  Age: 22 Year
  Sex: Male

DRUGS (3)
  1. AMBIEN [Suspect]
     Indication: DRUG USE FOR UNKNOWN INDICATION
     Route: 048
     Dates: start: 20090401
  2. WHISKEY [Suspect]
     Indication: DRUG USE FOR UNKNOWN INDICATION
     Dosage: TOOK A COCKTAIL OF ZOLPIDEM OTHER DRUGS AND WHISKEY
     Route: 048
     Dates: start: 20090401
  3. ALEVE [Suspect]
     Indication: DRUG USE FOR UNKNOWN INDICATION
     Route: 048
     Dates: start: 20090401

REACTIONS (4)
  - AMNESIA [None]
  - CONFUSIONAL STATE [None]
  - HOMICIDE [None]
  - MULTIPLE DRUG OVERDOSE [None]
